FAERS Safety Report 22695711 (Version 5)
Quarter: 2024Q4

REPORT INFORMATION
  Report Type: Spontaneous
  Country: FR (occurrence: FR)
  Receive Date: 20230712
  Receipt Date: 20241008
  Transmission Date: 20250115
  Serious: Yes (Other)
  Sender: AUROBINDO
  Company Number: FR-PFIZER INC-202300232462

PATIENT
  Age: 40 Year
  Sex: Female

DRUGS (13)
  1. POSACONAZOLE [Interacting]
     Active Substance: POSACONAZOLE
     Indication: Scedosporium infection
     Dosage: 200 MILLIGRAM, ONCE A DAY
     Route: 065
  2. POSACONAZOLE [Interacting]
     Active Substance: POSACONAZOLE
     Indication: Fungal infection
  3. POSACONAZOLE [Interacting]
     Active Substance: POSACONAZOLE
     Indication: Skin infection
  4. VORICONAZOLE [Suspect]
     Active Substance: VORICONAZOLE
     Indication: Scedosporium infection
     Dosage: 400 MILLIGRAM, ONCE A DAY(200 MG, 2X/DAY)
     Route: 048
  5. VORICONAZOLE [Suspect]
     Active Substance: VORICONAZOLE
     Indication: Fungal infection
  6. TACROLIMUS [Interacting]
     Active Substance: TACROLIMUS
     Indication: Prophylaxis against transplant rejection
     Dosage: 2 MILLIGRAM, ONCE A DAY
     Route: 065
  7. TACROLIMUS [Interacting]
     Active Substance: TACROLIMUS
     Indication: Skin infection
  8. TACROLIMUS [Interacting]
     Active Substance: TACROLIMUS
     Indication: Scedosporium infection
  9. VORICONAZOLE [Suspect]
     Active Substance: VORICONAZOLE
     Indication: Antifungal treatment
     Dosage: DAILY
     Route: 061
  10. CASPOFUNGIN [Concomitant]
     Active Substance: CASPOFUNGIN
     Indication: Antifungal treatment
     Dosage: 50 MILLIGRAM, ONCE A DAY
     Route: 042
  11. MYCOPHENOLIC ACID [Concomitant]
     Active Substance: MYCOPHENOLIC ACID
     Indication: Prophylaxis against transplant rejection
     Dosage: 360 MILLIGRAM, ONCE A DAY
     Route: 065
  12. POSACONAZOLE [Concomitant]
     Active Substance: POSACONAZOLE
     Indication: Prophylaxis against transplant rejection
     Dosage: DAILY WITH AN OCCLUSIVE PATCH
     Route: 061
  13. PREDNISONE [Concomitant]
     Active Substance: PREDNISONE
     Indication: Prophylaxis against transplant rejection
     Dosage: 5 MILLIGRAM, ONCE A DAY
     Route: 065

REACTIONS (8)
  - Alanine aminotransferase increased [Unknown]
  - Hepatic function abnormal [Unknown]
  - Blood creatinine increased [Unknown]
  - Proteinuria [Unknown]
  - Renal impairment [Unknown]
  - Hepatotoxicity [Unknown]
  - Drug interaction [Recovered/Resolved]
  - Therapeutic product effect incomplete [Unknown]
